FAERS Safety Report 19814107 (Version 2)
Quarter: 2021Q3

REPORT INFORMATION
  Report Type: Spontaneous
  Country: TW (occurrence: TW)
  Receive Date: 20210910
  Receipt Date: 20210928
  Transmission Date: 20211014
  Serious: Yes (Other)
  Sender: FDA-Public Use
  Company Number: NVSC2021TW201062

PATIENT
  Age: 54 Year
  Sex: Male
  Weight: 63 kg

DRUGS (10)
  1. CYCLOSPORINE. [Suspect]
     Active Substance: CYCLOSPORINE
     Dosage: 75 MG, Q12H
     Route: 042
     Dates: start: 20210724, end: 20210728
  2. CYCLOSPORINE. [Suspect]
     Active Substance: CYCLOSPORINE
     Dosage: 150 MG, Q12H
     Route: 048
     Dates: start: 20210729, end: 20210805
  3. CYCLOSPORINE. [Suspect]
     Active Substance: CYCLOSPORINE
     Indication: PERIPHERAL T-CELL LYMPHOMA UNSPECIFIED REFRACTORY
     Dosage: 75 MG, Q12H
     Route: 042
     Dates: start: 20210709, end: 20210714
  4. MYCOPHENOLATE MOFETIL. [Suspect]
     Active Substance: MYCOPHENOLATE MOFETIL
     Indication: GRAFT VERSUS HOST DISEASE IN SKIN
  5. CYCLOSPORINE. [Suspect]
     Active Substance: CYCLOSPORINE
     Dosage: 100 MG, Q12H
     Route: 048
     Dates: start: 20210715, end: 20210720
  6. MYCOPHENOLATE MOFETIL. [Suspect]
     Active Substance: MYCOPHENOLATE MOFETIL
     Indication: PROPHYLAXIS AGAINST GRAFT VERSUS HOST DISEASE
  7. PROGRAF [Concomitant]
     Active Substance: TACROLIMUS
     Indication: PROPHYLAXIS AGAINST GRAFT VERSUS HOST DISEASE
     Dosage: 2.5 MG, Q12H
     Route: 048
     Dates: start: 20210820, end: 20210822
  8. PROGRAF [Concomitant]
     Active Substance: TACROLIMUS
     Dosage: 1.5 MG, Q12H
     Route: 048
     Dates: start: 20210823
  9. CYCLOSPORINE. [Suspect]
     Active Substance: CYCLOSPORINE
     Dosage: 75 MG, Q12H
     Route: 048
     Dates: start: 20210809, end: 20210813
  10. MYCOPHENOLATE MOFETIL. [Suspect]
     Active Substance: MYCOPHENOLATE MOFETIL
     Indication: GRAFT VERSUS HOST DISEASE IN GASTROINTESTINAL TRACT
     Dosage: 750 MG, Q8H
     Route: 048
     Dates: start: 20210822

REACTIONS (7)
  - Acute graft versus host disease [Recovering/Resolving]
  - Acute graft versus host disease in skin [Recovering/Resolving]
  - Dermatitis bullous [Unknown]
  - Nephropathy toxic [Recovered/Resolved with Sequelae]
  - Acute graft versus host disease in intestine [Unknown]
  - Skin exfoliation [Unknown]
  - Acute graft versus host disease in liver [Unknown]

NARRATIVE: CASE EVENT DATE: 20210813
